FAERS Safety Report 12925125 (Version 1)
Quarter: 2016Q4

REPORT INFORMATION
  Report Type: Spontaneous
  Country: US (occurrence: US)
  Receive Date: 20161108
  Receipt Date: 20161108
  Transmission Date: 20170207
  Serious: Yes (Other)
  Sender: FDA-Public Use
  Company Number: US-BAUSCH-BL-2016-026385

PATIENT
  Age: 67 Year
  Sex: Female

DRUGS (1)
  1. DORZOLAMIDE HYDROCHLORIDE OPHTHALMIC SOLUTION 2% [Suspect]
     Active Substance: DORZOLAMIDE HYDROCHLORIDE
     Indication: INTRAOCULAR PRESSURE INCREASED
     Route: 047
     Dates: start: 20161019, end: 20161026

REACTIONS (1)
  - Hypotension [Unknown]

NARRATIVE: CASE EVENT DATE: 201610
